FAERS Safety Report 4304514-4 (Version None)
Quarter: 2004Q1

REPORT INFORMATION
  Report Type: 
  Country: None (occurrence: None)
  Receive Date: 20040223
  Receipt Date: 20040223
  Transmission Date: 20041129
  Serious: Yes (Other)
  Sender: FDA-Public Use
  Company Number: None

PATIENT
  Age: 52 Year
  Sex: Female
  Weight: 58.9676 kg

DRUGS (1)
  1. ZICAM COLD REMEDY [Suspect]
     Dosage: ONE SQUIRT TWICE DAIL NASAL
     Route: 045

REACTIONS (1)
  - ANOSMIA [None]
